FAERS Safety Report 7765732-6 (Version None)
Quarter: 2011Q3

REPORT INFORMATION
  Report Type: 
  Country: None (occurrence: None)
  Receive Date: 20110921
  Receipt Date: 20110410
  Transmission Date: 20111222
  Serious: No
  Sender: FDA-Public Use
  Company Number: US-BAYER-2011-071124

PATIENT
  Sex: Female

DRUGS (3)
  1. ALEVE (CAPLET) [Suspect]
     Indication: BACK PAIN
  2. ALEVE (CAPLET) [Suspect]
     Indication: MENSTRUAL DISORDER
     Dosage: 20 COUNT
     Route: 048
  3. ALEVE (CAPLET) [Suspect]
     Indication: DYSMENORRHOEA

REACTIONS (2)
  - DYSMENORRHOEA [None]
  - BACK PAIN [None]
